FAERS Safety Report 18576169 (Version 1)
Quarter: 2020Q4

REPORT INFORMATION
  Report Type: Spontaneous
  Country: CA (occurrence: CA)
  Receive Date: 20201203
  Receipt Date: 20201203
  Transmission Date: 20210114
  Serious: Yes (Death, Hospitalization)
  Sender: FDA-Public Use
  Company Number: CA-009507513-2012CAN000831

PATIENT
  Age: 73 Year
  Sex: Male

DRUGS (1)
  1. CUBICIN [Suspect]
     Active Substance: DAPTOMYCIN
     Indication: OSTEOMYELITIS
     Dosage: UNK, DOSAGE FORM NOT SPECIFIED
     Route: 041

REACTIONS (3)
  - Tubulointerstitial nephritis [Fatal]
  - Drug reaction with eosinophilia and systemic symptoms [Fatal]
  - Drug hypersensitivity [Fatal]
